FAERS Safety Report 5580970-9 (Version None)
Quarter: 2007Q4

REPORT INFORMATION
  Report Type: 
  Country: None (occurrence: None)
  Receive Date: 20071227
  Receipt Date: 20071218
  Transmission Date: 20080405
  Serious: Yes (Death)
  Sender: FDA-Public Use
  Company Number: S07-USA-06105-01

PATIENT
  Age: 27 Year
  Sex: Female

DRUGS (8)
  1. LEXAPRO [Suspect]
     Indication: MAJOR DEPRESSION
     Dates: start: 20071127, end: 20071127
  2. LEXAPRO [Suspect]
     Indication: MAJOR DEPRESSION
     Dosage: 30 MG QD PO
     Route: 048
     Dates: start: 20040113, end: 20060724
  3. LEXAPRO [Suspect]
     Indication: MAJOR DEPRESSION
     Dates: start: 20060725
  4. SEROQUEL [Concomitant]
  5. KLONOPIN [Concomitant]
  6. ZYPREXA [Concomitant]
  7. RESTORIL [Concomitant]
  8. EMSAM (SELEGILINE) [Concomitant]

REACTIONS (5)
  - CEREBRAL HAEMORRHAGE [None]
  - FALL [None]
  - HEAD INJURY [None]
  - OVERDOSE [None]
  - SELF-MEDICATION [None]
